FAERS Safety Report 8059840 (Version 3)
Quarter: 2014Q3

REPORT INFORMATION
  Report Type: Spontaneous
  Country: US (occurrence: US)
  Receive Date: 20110728
  Receipt Date: 20140702
  Transmission Date: 20150326
  Serious: Yes (Hospitalization, Other)
  Sender: FDA-Public Use
  Company Number: US-ASTRAZENECA-2011SE43114

PATIENT
  Age: 26520 Day
  Sex: Female
  Weight: 86 kg

DRUGS (1)
  1. NEXIUM [Suspect]
     Active Substance: ESOMEPRAZOLE MAGNESIUM
     Route: 048

REACTIONS (5)
  - Chest pain [Recovered/Resolved]
  - Coronary artery stenosis [Unknown]
  - Respiratory tract infection [Unknown]
  - Arteriosclerosis coronary artery [Unknown]
  - Electrocardiogram abnormal [Unknown]

NARRATIVE: CASE EVENT DATE: 20110614
